FAERS Safety Report 17099919 (Version 1)
Quarter: 2019Q4

REPORT INFORMATION
  Report Type: Spontaneous
  Country: US (occurrence: US)
  Receive Date: 20191202
  Receipt Date: 20191202
  Transmission Date: 20200122
  Serious: No
  Sender: FDA-Public Use
  Company Number: US-CELGENEUS-USA-20191110662

PATIENT
  Age: 74 Year
  Sex: Female

DRUGS (2)
  1. OTEZLA [Suspect]
     Active Substance: APREMILAST
     Indication: PSORIASIS
     Dosage: 10,20,30 MG (TITRATION PACK)
     Route: 048
     Dates: start: 20191104, end: 20191105
  2. OTEZLA [Suspect]
     Active Substance: APREMILAST
     Dosage: 10,20,30 MG (TITRATION PACK)
     Route: 048
     Dates: start: 20191106, end: 20191106

REACTIONS (1)
  - Abdominal discomfort [Recovered/Resolved]

NARRATIVE: CASE EVENT DATE: 20191104
